FAERS Safety Report 9404550 (Version 2)
Quarter: 2013Q3

REPORT INFORMATION
  Report Type: Spontaneous
  Country: US (occurrence: None)
  Receive Date: 20130715
  Receipt Date: 20130920
  Transmission Date: 20140515
  Serious: Yes (Other)
  Sender: FDA-Public Use
  Company Number: A1032045A

PATIENT
  Age: 73 Year
  Sex: Female

DRUGS (2)
  1. METHYLCELLULOSE [Suspect]
     Indication: DIARRHOEA
     Dosage: SINGLE DOSE/UNKNOWN
     Dates: start: 20130510, end: 20130510
  2. SEMISODIUM VALPROATE [Suspect]
     Indication: CONVULSION
     Route: 048

REACTIONS (4)
  - Convulsion [None]
  - Drug administration error [None]
  - Drug ineffective [None]
  - Diarrhoea [None]
